FAERS Safety Report 4631955-8 (Version None)
Quarter: 2005Q2

REPORT INFORMATION
  Report Type: 
  Country: None (occurrence: None)
  Receive Date: 20050411
  Receipt Date: 20050404
  Transmission Date: 20051028
  Serious: Yes (Other)
  Sender: FDA-Public Use
  Company Number: 200512755US

PATIENT
  Age: 75 Year
  Sex: Male

DRUGS (14)
  1. LANTUS [Suspect]
     Indication: DIABETES MELLITUS NON-INSULIN-DEPENDENT
     Dosage: DOSE UNIT: UNITS
  2. OPTICLIK (INSULIN INJECTION PEN) [Suspect]
     Dosage: DOSE: UNK
  3. PRANDIN [Concomitant]
     Dosage: DOSE: UNKNOWN
  4. METFORMIN HCL [Concomitant]
     Dosage: DOSE: UNKNOWN
  5. ATENOLOL [Concomitant]
     Dosage: DOSE: UNKNOWN
  6. ASPIRIN [Concomitant]
     Dosage: DOSE: UNKNOWN
  7. ATIVAN [Concomitant]
     Dosage: DOSE: UNKNOWN
  8. ZANTAC [Concomitant]
     Dosage: DOSE: UNKNOWN
  9. UNKNOWN DRUG [Concomitant]
     Dosage: DOSE: UNKNOWN
  10. NORVASC [Concomitant]
     Dosage: DOSE: UNKNOWN
  11. LASIX [Concomitant]
     Dosage: DOSE: UNKNOWN
  12. IMDUR [Concomitant]
     Dosage: DOSE: UNKNOWN
  13. LISINOPRIL [Concomitant]
     Dosage: DOSE: UNKNOWN
  14. LIPITOR [Concomitant]
     Dosage: DOSE: UNKNOWN

REACTIONS (3)
  - ANGINA PECTORIS [None]
  - BLOOD GLUCOSE INCREASED [None]
  - PHARMACEUTICAL PRODUCT COMPLAINT [None]
